FAERS Safety Report 5343921-8 (Version None)
Quarter: 2007Q2

REPORT INFORMATION
  Report Type: 
  Country: None (occurrence: None)
  Receive Date: 20070531
  Receipt Date: 20070516
  Transmission Date: 20071010
  Serious: Yes (Hospitalization)
  Sender: FDA-Public Use
  Company Number: 2006RR-02818

PATIENT
  Age: 51 Year
  Sex: Female

DRUGS (12)
  1. SIMVASTATIN [Suspect]
     Indication: HYPERCHOLESTEROLAEMIA
     Dosage: 20 MG, BID, ORAL
     Route: 048
  2. RITONAVIR (RITONAVIR) [Suspect]
     Indication: HYPERCHOLESTEROLAEMIA
     Dosage: 100 MG, BID, ORAL
     Route: 048
  3. ZIDOVUDINE [Concomitant]
  4. LAMIVUDINE (LAMIVUDINE) TABLET [Concomitant]
  5. INDINIVIR SULFATE [Concomitant]
  6. OMEPRAZOLE [Concomitant]
  7. ISOPHANE INSULIN [Concomitant]
  8. METFORMIN HYDROCHLORIDE [Concomitant]
  9. MECLIZINE [Concomitant]
  10. ESTROGENS [Concomitant]
  11. MEDROXYPROGESTERONE ACETATE [Concomitant]
  12. OXYCODONE HCL [Concomitant]

REACTIONS (2)
  - DRUG INTERACTION [None]
  - RHABDOMYOLYSIS [None]
